FAERS Safety Report 9000536 (Version 1)
Quarter: 2012Q4

REPORT INFORMATION
  Report Type: Spontaneous
  Country: GB (occurrence: None)
  Receive Date: 20121221
  Receipt Date: 20121221
  Transmission Date: 20130627
  Serious: Yes (Disabling)
  Sender: FDA-Public Use
  Company Number: AUR-APL-2012-05404

PATIENT
  Age: 49 Year
  Sex: Female
  Weight: 92.07 kg

DRUGS (4)
  1. CIPROFLOXACIN [Suspect]
     Indication: PYELONEPHRITIS
     Route: 048
     Dates: start: 20120421, end: 20120504
  2. IBUPROFEN (IBUPROFEN) [Concomitant]
  3. TEMAZEPAM (TEMAZEPAM) [Concomitant]
  4. TRANEXAMIC ACID (TRANEXAMIC ACID) [Concomitant]

REACTIONS (7)
  - Food intolerance [None]
  - Alopecia [None]
  - Insomnia [None]
  - Mental disorder [None]
  - Neuropathy peripheral [None]
  - Tendonitis [None]
  - Abasia [None]
